FAERS Safety Report 21918236 (Version 2)
Quarter: 2024Q3

REPORT INFORMATION
  Report Type: Spontaneous
  Country: NL (occurrence: NL)
  Receive Date: 20230127
  Receipt Date: 20240902
  Transmission Date: 20241017
  Serious: Yes (Hospitalization)
  Sender: AUROBINDO
  Company Number: NL-GLAXOSMITHKLINE-NL2022GSK199260

PATIENT
  Age: 49 Year
  Sex: Female

DRUGS (5)
  1. AZITHROMYCIN [Suspect]
     Active Substance: AZITHROMYCIN
     Indication: Babesiosis
     Dosage: UNK
     Route: 042
  2. ATOVAQUONE [Suspect]
     Active Substance: ATOVAQUONE
     Indication: Babesiosis
     Dosage: UNK
     Route: 048
  3. DOXYCYCLINE [Concomitant]
     Active Substance: DOXYCYCLINE\DOXYCYCLINE HYCLATE
     Indication: Antibiotic therapy
     Dosage: UNK
     Route: 065
  4. OXYGEN [Concomitant]
     Active Substance: OXYGEN
     Indication: Respiratory disorder
     Dosage: UNK
     Route: 065
  5. PIPERACILLIN AND TAZOBACTAM [Concomitant]
     Active Substance: PIPERACILLIN SODIUM\TAZOBACTAM SODIUM
     Indication: Antibiotic therapy
     Dosage: UNK
     Route: 065

REACTIONS (2)
  - General physical health deterioration [Recovering/Resolving]
  - Drug ineffective [Unknown]
